FAERS Safety Report 6162810-2 (Version None)
Quarter: 2009Q2

REPORT INFORMATION
  Report Type: 
  Country: None (occurrence: None)
  Receive Date: 20090421
  Receipt Date: 20090406
  Transmission Date: 20091009
  Serious: Yes (Other)
  Sender: FDA-Public Use
  Company Number: IT-GENENTECH-281166

PATIENT
  Sex: Female

DRUGS (5)
  1. AVASTIN [Suspect]
     Indication: BREAST CANCER
     Dosage: 10 MG/KG, Q14D
     Route: 042
  2. EPIRUBICIN [Suspect]
     Indication: BREAST CANCER
     Dosage: 25 MG/M2, UNK
     Route: 042
  3. CISPLATIN [Suspect]
     Indication: BREAST CANCER
     Dosage: 60 MG/M2, UNK
     Route: 042
  4. FLUOROURACIL [Suspect]
     Indication: BREAST CANCER
     Dosage: 200 MG/M2, CONTINUOUS
     Route: 065
  5. PACLITAXEL [Suspect]
     Indication: BREAST CANCER
     Dosage: 90 MG/M2, Q28D
     Route: 042

REACTIONS (10)
  - DEEP VEIN THROMBOSIS [None]
  - DISEASE PROGRESSION [None]
  - FEBRILE NEUTROPENIA [None]
  - HYPERTENSION [None]
  - LEUKOPENIA [None]
  - MUCOSAL INFLAMMATION [None]
  - NAUSEA [None]
  - NERVOUS SYSTEM DISORDER [None]
  - NEUTROPENIA [None]
  - VOMITING [None]
